FAERS Safety Report 8290291-1 (Version None)
Quarter: 2012Q2

REPORT INFORMATION
  Report Type: 
  Country: None (occurrence: None)
  Receive Date: 20120412
  Receipt Date: 20120412
  Transmission Date: 20120825
  Serious: Yes (Hospitalization)
  Sender: FDA-Public Use
  Company Number: None

PATIENT
  Age: 50 Year
  Sex: Male

DRUGS (2)
  1. RIBAVIRIN [Suspect]
     Indication: COMA
     Dosage: 400MG BID PO
     Route: 048
     Dates: start: 20120302
  2. PEGASYS [Suspect]
     Indication: HEPATITIS C
     Dosage: 180MG QW SUB-Q
     Route: 058
     Dates: start: 20120302

REACTIONS (3)
  - BLOOD COUNT ABNORMAL [None]
  - DIZZINESS [None]
  - PAIN [None]
